FAERS Safety Report 8486243-9 (Version None)
Quarter: 2012Q3

REPORT INFORMATION
  Report Type: 
  Country: None (occurrence: None)
  Receive Date: 20120703
  Receipt Date: 20120627
  Transmission Date: 20120928
  Serious: Yes (Hospitalization)
  Sender: FDA-Public Use
  Company Number: US-TEVA-346078USA

PATIENT
  Sex: Male

DRUGS (15)
  1. TREANDA [Suspect]
     Indication: MULTIPLE MYELOMA
     Dosage: DAYS 1-2
     Route: 042
     Dates: start: 20110714, end: 20111202
  2. BIO D EMULSION [Concomitant]
     Dates: start: 20110630
  3. MORNIFLUMATE [Concomitant]
     Dates: start: 20071017
  4. TESTOSTERONE [Concomitant]
     Dates: start: 20110620
  5. EPOETIN ALFA [Concomitant]
     Dates: start: 20110620
  6. VICODIN [Concomitant]
     Dates: start: 20110620
  7. BACTRIM [Concomitant]
     Dates: start: 20110714
  8. FLUCONAZOLE [Concomitant]
     Dates: start: 20110811
  9. LENALIDOMIDE [Suspect]
     Dates: start: 20110714, end: 20120613
  10. DEXAMETHASONE SODIUM PHOSPHATE [Suspect]
     Dates: start: 20110714, end: 20120613
  11. WARFARIN SODIUM [Concomitant]
     Dates: start: 20110620
  12. OMEPRAZOLE [Concomitant]
     Dates: start: 20110714
  13. ESCITALOPRAM OXALATE [Concomitant]
     Dates: start: 20071017
  14. IBUPROFEN [Concomitant]
     Dates: start: 20110620
  15. ZOLPIDEM TARTRATE [Concomitant]
     Dates: start: 20110908

REACTIONS (1)
  - PNEUMONIA [None]
